FAERS Safety Report 10433101 (Version 2)
Quarter: 2014Q3

REPORT INFORMATION
  Report Type: Report from Study
  Country: US (occurrence: US)
  Receive Date: 20140905
  Receipt Date: 20140922
  Transmission Date: 20150326
  Serious: Yes (Life-Threatening)
  Sender: FDA-Public Use
  Company Number: US-009507513-1409USA002177

PATIENT

DRUGS (2)
  1. HYDROXYCHLOROQUINE SULFATE. [Suspect]
     Active Substance: HYDROXYCHLOROQUINE SULFATE
     Indication: GLIOBLASTOMA MULTIFORME
     Dosage: 800 MG DAILY
  2. TEMODAR [Suspect]
     Active Substance: TEMOZOLOMIDE
     Indication: GLIOBLASTOMA MULTIFORME
     Dosage: 75 MG/M2, DAILY, 1H BEFORE EACH RT SESSION OR IN THE AM ON DS WITHOUT RT
     Route: 048

REACTIONS (2)
  - Thrombocytopenia [Unknown]
  - Neutropenia [Unknown]
